FAERS Safety Report 18478435 (Version 1)
Quarter: 2020Q4

REPORT INFORMATION
  Report Type: Spontaneous
  Country: US (occurrence: US)
  Receive Date: 20201109
  Receipt Date: 20201109
  Transmission Date: 20210114
  Serious: Yes (Hospitalization, Other)
  Sender: FDA-Public Use
  Company Number: US-TEVA-2020-US-1847464

PATIENT
  Age: 77 Year
  Sex: Female

DRUGS (1)
  1. ALLOPURINOL. [Suspect]
     Active Substance: ALLOPURINOL
     Route: 065

REACTIONS (4)
  - Stevens-Johnson syndrome [Unknown]
  - Skin injury [Unknown]
  - Blindness [Unknown]
  - Burns third degree [Unknown]

NARRATIVE: CASE EVENT DATE: 2015
